FAERS Safety Report 5601383-7 (Version None)
Quarter: 2008Q1

REPORT INFORMATION
  Report Type: 
  Country: None (occurrence: None)
  Receive Date: 20080110
  Receipt Date: 20070306
  Transmission Date: 20080703
  Serious: Yes (Death, Other)
  Sender: FDA-Public Use
  Company Number: 20070306VANCO0214

PATIENT
  Age: 82 Year
  Sex: Male
  Weight: 46 kg

DRUGS (10)
  1. VANCOMYCIN [Suspect]
     Indication: CLOSTRIDIAL INFECTION
     Dosage: SEE IMAGE
     Route: 049
     Dates: start: 20070127, end: 20070201
  2. VANCOMYCIN [Suspect]
     Indication: ENTEROCOLITIS BACTERIAL
     Dosage: SEE IMAGE
     Route: 049
     Dates: start: 20070127, end: 20070201
  3. VANCOMYCIN [Suspect]
     Indication: PSEUDOMEMBRANOUS COLITIS
     Dosage: SEE IMAGE
     Route: 049
     Dates: start: 20070127, end: 20070201
  4. VANCOMYCIN [Suspect]
     Indication: CLOSTRIDIAL INFECTION
     Dosage: SEE IMAGE
     Route: 049
     Dates: start: 20061225
  5. VANCOMYCIN [Suspect]
     Indication: ENTEROCOLITIS BACTERIAL
     Dosage: SEE IMAGE
     Route: 049
     Dates: start: 20061225
  6. VANCOMYCIN [Suspect]
     Indication: PSEUDOMEMBRANOUS COLITIS
     Dosage: SEE IMAGE
     Route: 049
     Dates: start: 20061225
  7. . [Concomitant]
  8. CHINESE HERBAL MEDICINE(HERBAL PREPARATION) [Concomitant]
  9. LOPEMIN(LOPERAMIDE HYDROCHLORIDE) (CAPSULES) [Concomitant]
  10. OMEGACIN (BIAPENEM) [Concomitant]

REACTIONS (3)
  - PNEUMONIA STAPHYLOCOCCAL [None]
  - RENAL IMPAIRMENT [None]
  - URINARY TRACT INFECTION [None]
